FAERS Safety Report 25075022 (Version 1)
Quarter: 2025Q1

REPORT INFORMATION
  Report Type: Other
  Country: FI (occurrence: FI)
  Receive Date: 20250313
  Receipt Date: 20250313
  Transmission Date: 20250408
  Serious: Yes (Hospitalization, Other)
  Sender: B BRAUN
  Company Number: FI-B.Braun Medical Inc.-2172796

PATIENT
  Age: 75 Year
  Sex: Female

DRUGS (2)
  1. CEFTAZIDIME [Suspect]
     Active Substance: CEFTAZIDIME
     Indication: Pyrexia
  2. MEROPENEM [Suspect]
     Active Substance: MEROPENEM

REACTIONS (1)
  - Neutropenia [Recovering/Resolving]
